FAERS Safety Report 21218636 (Version 1)
Quarter: 2022Q3

REPORT INFORMATION
  Report Type: Report from Study
  Country: US (occurrence: US)
  Receive Date: 20220816
  Receipt Date: 20220816
  Transmission Date: 20221027
  Serious: Yes (Death, Other)
  Sender: FDA-Public Use
  Company Number: US-KYOWAKIRIN-2022BKK012856

PATIENT

DRUGS (2)
  1. NOURIANZ [Suspect]
     Active Substance: ISTRADEFYLLINE
     Indication: Parkinson^s disease
     Dosage: 20 MG, QD (EVERY MORNING)
     Route: 048
     Dates: start: 20220223
  2. NOURIANZ [Suspect]
     Active Substance: ISTRADEFYLLINE
     Indication: Multiple system atrophy

REACTIONS (2)
  - Death [Fatal]
  - Product use in unapproved indication [Unknown]

NARRATIVE: CASE EVENT DATE: 20220731
